FAERS Safety Report 5144088-1 (Version None)
Quarter: 2006Q4

REPORT INFORMATION
  Report Type: 
  Country: None (occurrence: None)
  Receive Date: 20061106
  Receipt Date: 20061026
  Transmission Date: 20070319
  Serious: Yes (Death)
  Sender: FDA-Public Use
  Company Number: UG-GLAXOSMITHKLINE-B0445170A

PATIENT
  Sex: Male

DRUGS (3)
  1. ALBENDAZOLE [Suspect]
     Indication: HELMINTHIC INFECTION
     Route: 048
     Dates: start: 20060124
  2. ALBENDAZOLE [Suspect]
  3. PRAZIQUANTEL [Suspect]
     Indication: HELMINTHIC INFECTION

REACTIONS (2)
  - DEATH [None]
  - DRUG EXPOSURE DURING PREGNANCY [None]
